FAERS Safety Report 8987665 (Version 1)
Quarter: 2012Q4

REPORT INFORMATION
  Report Type: 
  Country: US (occurrence: US)
  Receive Date: 20121227
  Receipt Date: 20121227
  Transmission Date: 20130627
  Serious: Yes (Other)
  Sender: FDA-Public Use
  Company Number: US-PFIZER INC-2011234211

PATIENT
  Age: 54 Year
  Sex: Male
  Weight: 61.22 kg

DRUGS (3)
  1. CHANTIX [Suspect]
     Indication: SMOKING CESSATION THERAPY
     Dosage: 0.5 mg, 1x/day
     Route: 048
     Dates: start: 20110801, end: 201108
  2. CHANTIX [Suspect]
     Dosage: UNK
     Route: 048
     Dates: start: 2012, end: 201206
  3. GABAPENTIN [Concomitant]
     Indication: NEUROPATHY
     Dosage: 300 mg, 2x/day

REACTIONS (6)
  - Chronic obstructive pulmonary disease [Not Recovered/Not Resolved]
  - Emphysema [Not Recovered/Not Resolved]
  - Bronchitis [Not Recovered/Not Resolved]
  - Abnormal dreams [Unknown]
  - Poor quality drug administered [Unknown]
  - Product colour issue [Unknown]
